FAERS Safety Report 16103162 (Version 2)
Quarter: 2021Q4

REPORT INFORMATION
  Report Type: Spontaneous
  Country: GB (occurrence: GB)
  Receive Date: 20190322
  Receipt Date: 20211120
  Transmission Date: 20220304
  Serious: Yes (Death, Other)
  Sender: FDA-Public Use
  Company Number: GB-AUROBINDO-AUR-APL-2019-014402

PATIENT
  Age: 19 Year
  Sex: Female

DRUGS (5)
  1. DOMPERIDONE [Interacting]
     Active Substance: DOMPERIDONE
     Indication: Product used for unknown indication
     Dosage: UNK
     Route: 065
  2. SILDENAFIL [Interacting]
     Active Substance: SILDENAFIL
     Indication: Pulmonary arterial hypertension
     Dosage: 50 MILLIGRAM, ONCE A DAY (150 MG, TID)
     Route: 065
  3. AMOXICILLIN [Interacting]
     Active Substance: AMOXICILLIN
     Indication: Ear infection
     Dosage: UNK
     Route: 065
  4. OMEPRAZOLE [Interacting]
     Active Substance: OMEPRAZOLE
     Indication: Ill-defined disorder
     Dosage: UNK
     Route: 065
  5. SITAXENTAN [Interacting]
     Active Substance: SITAXENTAN
     Indication: Pulmonary arterial hypertension
     Dosage: 100 MILLIGRAM DAILY
     Route: 065

REACTIONS (6)
  - Hepatic necrosis [Fatal]
  - Brain oedema [Fatal]
  - Coagulopathy [Fatal]
  - Acute hepatic failure [Fatal]
  - Jaundice [Fatal]
  - Drug interaction [Fatal]
